FAERS Safety Report 4474647-0 (Version None)
Quarter: 2004Q4

REPORT INFORMATION
  Report Type: 
  Country: None (occurrence: None)
  Receive Date: 20041012
  Receipt Date: 20040929
  Transmission Date: 20050328
  Serious: Yes (Life-Threatening)
  Sender: FDA-Public Use
  Company Number: 2004236704DE

PATIENT
  Age: 74 Year
  Sex: Female
  Weight: 50 kg

DRUGS (4)
  1. ARTHOTEC(DICLOFENAC SODIUM, MISOPROSTOL) TABLET [Suspect]
     Indication: PAIN
     Dosage: BID, ORAL
     Route: 048
     Dates: start: 20030501, end: 20040401
  2. ACTONEL [Suspect]
     Indication: OSTEOPOROSIS
     Dosage: 35 MG, WEEKLY, ORAL
     Route: 048
     Dates: start: 20030501
  3. VERABETA (VERAPAMIL HYDROCHLORIDE) [Concomitant]
  4. IDEOS [Concomitant]

REACTIONS (4)
  - CARDIAC FAILURE [None]
  - GASTRIC ULCER [None]
  - NON-HODGKIN'S LYMPHOMA [None]
  - SICK SINUS SYNDROME [None]
